FAERS Safety Report 8281432-0 (Version None)
Quarter: 2012Q1

REPORT INFORMATION
  Report Type: 
  Country: None (occurrence: None)
  Receive Date: 20120316
  Receipt Date: 20101129
  Transmission Date: 20120608
  Serious: Yes (Life-Threatening, Hospitalization)
  Sender: FDA-Public Use
  Company Number: PHHY2010US50511

PATIENT
  Age: 72 Year
  Sex: Female
  Weight: 192 kg

DRUGS (3)
  1. LISINOPRIL [Concomitant]
  2. TEKTURNA [Suspect]
  3. BENICAR [Concomitant]

REACTIONS (4)
  - BRONCHOSPASM [None]
  - DYSPNOEA [None]
  - DYSPHAGIA [None]
  - ANGIOEDEMA [None]
